FAERS Safety Report 22281860 (Version 1)
Quarter: 2023Q2

REPORT INFORMATION
  Report Type: Spontaneous
  Country: JP (occurrence: None)
  Receive Date: 20230504
  Receipt Date: 20230504
  Transmission Date: 20230722
  Serious: Yes (Other)
  Sender: FDA-Public Use
  Company Number: JP-Merck Healthcare KGaA-9399441

PATIENT
  Age: 84 Year
  Sex: Female

DRUGS (2)
  1. METGLUCO [Suspect]
     Active Substance: METFORMIN HYDROCHLORIDE
     Indication: Product used for unknown indication
     Route: 048
  2. NESINA [Suspect]
     Active Substance: ALOGLIPTIN BENZOATE
     Indication: Diabetes mellitus
     Route: 048

REACTIONS (1)
  - Dupuytren^s contracture [Unknown]
